FAERS Safety Report 7533428-1 (Version None)
Quarter: 2011Q2

REPORT INFORMATION
  Report Type: 
  Country: None (occurrence: None)
  Receive Date: 20110608
  Receipt Date: 20051115
  Transmission Date: 20111010
  Serious: Yes (Hospitalization, Other)
  Sender: FDA-Public Use
  Company Number: PHFR2005GB02995

PATIENT
  Sex: Male

DRUGS (1)
  1. CLOZARIL [Suspect]
     Indication: SCHIZOPHRENIA
     Dosage: 875MG DAILY
     Route: 048
     Dates: start: 19910227

REACTIONS (3)
  - RENAL CELL CARCINOMA [None]
  - BLOOD CREATININE INCREASED [None]
  - HAEMATURIA [None]
